FAERS Safety Report 23291690 (Version 1)
Quarter: 2023Q4

REPORT INFORMATION
  Report Type: Spontaneous
  Country: CN (occurrence: CN)
  Receive Date: 20231213
  Receipt Date: 20231213
  Transmission Date: 20240109
  Serious: Yes (Hospitalization, Other)
  Sender: FDA-Public Use
  Company Number: CN-PFIZER INC-PV202300197805

PATIENT
  Age: 41 Year
  Sex: Male

DRUGS (2)
  1. AVIBACTAM SODIUM\CEFTAZIDIME [Suspect]
     Active Substance: AVIBACTAM SODIUM\CEFTAZIDIME
     Indication: Anti-infective therapy
     Dosage: TIME INTERVAL: 0.33333333 DAYS: 2.5 G, 3X/DAY
     Route: 041
     Dates: start: 20231112, end: 20231127
  2. COLISTIMETHATE SODIUM [Suspect]
     Active Substance: COLISTIMETHATE SODIUM
     Indication: Anti-infective therapy
     Dosage: 225 MG, 1X/DAY
     Route: 041
     Dates: start: 20231122, end: 20231127

REACTIONS (2)
  - Renal injury [Recovering/Resolving]
  - Blood creatinine increased [Recovering/Resolving]

NARRATIVE: CASE EVENT DATE: 20231126
